FAERS Safety Report 10101843 (Version 2)
Quarter: 2014Q2

REPORT INFORMATION
  Report Type: Report from Study
  Country: US (occurrence: US)
  Receive Date: 20140424
  Receipt Date: 20140501
  Transmission Date: 20141212
  Serious: Yes (Hospitalization, Other)
  Sender: FDA-Public Use
  Company Number: US-BAXTER-2014BAX020027

PATIENT
  Age: 27 Year
  Sex: Male

DRUGS (2)
  1. ADVATE [Suspect]
     Indication: HAEMOPHILIA
     Route: 042
  2. ADVATE [Suspect]
     Dates: start: 201310

REACTIONS (2)
  - Haemorrhage [Recovering/Resolving]
  - Pain [Recovering/Resolving]
